FAERS Safety Report 4433115-2 (Version None)
Quarter: 2004Q3

REPORT INFORMATION
  Report Type: 
  Country: None (occurrence: None)
  Receive Date: 20040823
  Receipt Date: 20040820
  Transmission Date: 20050211
  Serious: Yes (Death)
  Sender: FDA-Public Use
  Company Number: 402825410/PHRM2004FR02110

PATIENT
  Age: 42 Year
  Sex: Male
  Weight: 80 kg

DRUGS (4)
  1. INDYCIANINE GREEN [Suspect]
     Dosage: IV
     Route: 042
     Dates: start: 20040614
  2. AK-FLUOR 10%, AKORN [Suspect]
     Indication: ANGIOGRAM RETINA
     Dosage: 5ML, IV
     Route: 042
     Dates: start: 20040614
  3. MYDRIATRICUM EYE DROPS [Concomitant]
  4. NEOSYNEPHRINE EYE DROPS [Concomitant]

REACTIONS (15)
  - ANAPHYLACTIC SHOCK [None]
  - CARDIO-RESPIRATORY ARREST [None]
  - COMA [None]
  - CONVULSION [None]
  - DIALYSIS [None]
  - DYSGEUSIA [None]
  - INTESTINAL ISCHAEMIA [None]
  - LACTIC ACIDOSIS [None]
  - LOSS OF CONSCIOUSNESS [None]
  - MALAISE [None]
  - MULTI-ORGAN FAILURE [None]
  - MYOCARDIAL ISCHAEMIA [None]
  - SHOCK [None]
  - URINARY INCONTINENCE [None]
  - VENTRICULAR FIBRILLATION [None]
